FAERS Safety Report 24360705 (Version 1)
Quarter: 2024Q3

REPORT INFORMATION
  Report Type: Report from Study
  Country: US (occurrence: US)
  Receive Date: 20240925
  Receipt Date: 20240925
  Transmission Date: 20241016
  Serious: Yes (Death, Hospitalization)
  Sender: RECORDATI
  Company Number: US-RECORDATI RARE DISEASES-2024007072

PATIENT

DRUGS (1)
  1. PANHEMATIN [Suspect]
     Active Substance: HEMIN
     Indication: Porphyria acute
     Dosage: UNK
     Dates: start: 20240803, end: 20240806

REACTIONS (3)
  - Death [Fatal]
  - Seizure [Unknown]
  - Aggression [Unknown]

NARRATIVE: CASE EVENT DATE: 20240801
